FAERS Safety Report 22637377 (Version 1)
Quarter: 2023Q2

REPORT INFORMATION
  Report Type: Spontaneous
  Country: US (occurrence: None)
  Receive Date: 20230623
  Receipt Date: 20230623
  Transmission Date: 20230721
  Serious: No
  Sender: FDA-Public Use
  Company Number: None

PATIENT

DRUGS (2)
  1. NOVOLIN N [Suspect]
     Active Substance: INSULIN HUMAN
  2. NOVOLIN 70/30 [Suspect]
     Active Substance: INSULIN HUMAN

REACTIONS (2)
  - Product packaging confusion [None]
  - Product label confusion [None]
